FAERS Safety Report 6096101-5 (Version None)
Quarter: 2009Q1

REPORT INFORMATION
  Report Type: 
  Country: None (occurrence: None)
  Receive Date: 20090227
  Receipt Date: 20080909
  Transmission Date: 20090719
  Serious: No
  Sender: FDA-Public Use
  Company Number: A0745685A

PATIENT
  Age: 23 Year
  Sex: Female

DRUGS (3)
  1. LAMICTAL [Suspect]
     Indication: BIPOLAR DISORDER
     Dosage: 150MG PER DAY
     Route: 048
     Dates: start: 20080701
  2. ABILIFY [Concomitant]
  3. METHIMAZOLE [Concomitant]

REACTIONS (3)
  - ADVERSE EVENT [None]
  - RASH [None]
  - SKIN REACTION [None]
